FAERS Safety Report 9464495 (Version 2)
Quarter: 2013Q3

REPORT INFORMATION
  Report Type: Spontaneous
  Country: US (occurrence: US)
  Receive Date: 20130819
  Receipt Date: 20130906
  Transmission Date: 20140515
  Serious: No
  Sender: FDA-Public Use
  Company Number: US-PFIZER INC-2013238919

PATIENT
  Age: 58 Year
  Sex: Female
  Weight: 56.69 kg

DRUGS (8)
  1. LYRICA [Suspect]
     Indication: FIBROMYALGIA
     Dosage: 75 MG, 2X/DAY
     Dates: end: 201307
  2. GABAPENTIN [Suspect]
     Indication: FIBROMYALGIA
     Dosage: UNK
  3. ZOLOFT [Concomitant]
     Indication: ANXIETY
     Dosage: 150 MG, 1X/DAY
  4. CLONAZEPAM [Concomitant]
     Indication: ANXIETY
     Dosage: UNK,1MG 4 TIMES IN A DAY AND 2MG AT NIGHT ,5X/DAY
  5. ABILIFY [Concomitant]
     Indication: ANXIETY
     Dosage: UNK
  6. BOTOX [Concomitant]
     Indication: MIGRAINE
     Dosage: UNK, ALTERNATE DAY
  7. LAMICTAL [Concomitant]
     Indication: MIGRAINE
     Dosage: UNK
  8. TIZANIDINE [Concomitant]
     Indication: MIGRAINE
     Dosage: UNK

REACTIONS (2)
  - Pain [Not Recovered/Not Resolved]
  - Drug ineffective [Unknown]
